FAERS Safety Report 25769279 (Version 1)
Quarter: 2025Q3

REPORT INFORMATION
  Report Type: Spontaneous
  Country: EU (occurrence: EU)
  Receive Date: 20250906
  Receipt Date: 20250906
  Transmission Date: 20251021
  Serious: Yes (Other)
  Sender: AMGEN
  Company Number: EU-AMGEN-DEUSP2025166162

PATIENT
  Age: 37 Year
  Sex: Male
  Weight: 82 kg

DRUGS (24)
  1. ARANESP [Suspect]
     Active Substance: DARBEPOETIN ALFA
     Indication: Anaemia
     Dosage: 60 MICROGRAM, QWK
     Route: 040
     Dates: start: 20220509
  2. ARANESP [Suspect]
     Active Substance: DARBEPOETIN ALFA
  3. CINACALCET HYDROCHLORIDE [Suspect]
     Active Substance: CINACALCET HYDROCHLORIDE
     Indication: Calciphylaxis
     Route: 065
  4. CYCLOSPORINE [Concomitant]
     Active Substance: CYCLOSPORINE
  5. FUROSEMIDE [Concomitant]
     Active Substance: FUROSEMIDE
  6. Jutapress [Concomitant]
  7. PANTOPRAZOLE [Concomitant]
     Active Substance: PANTOPRAZOLE
  8. RAMIPRIL [Concomitant]
     Active Substance: RAMIPRIL
  9. Nepresol [Concomitant]
  10. METOPROLOL [Concomitant]
     Active Substance: METOPROLOL
  11. SIMVASTATIN [Concomitant]
     Active Substance: SIMVASTATIN
  12. NALOXONE HYDROCHLORIDE\TILIDINE HYDROCHLORIDE [Concomitant]
     Active Substance: NALOXONE HYDROCHLORIDE\TILIDINE HYDROCHLORIDE
  13. HUMULIN L [Concomitant]
     Active Substance: INSULIN HUMAN
  14. INSULIN GLARGINE [Concomitant]
     Active Substance: INSULIN GLARGINE
  15. Ass abz tah [Concomitant]
  16. PREDNISOLONE [Concomitant]
     Active Substance: PREDNISOLONE
  17. LANTUS [Concomitant]
     Active Substance: INSULIN GLARGINE
  18. Sevemed [Concomitant]
  19. LEVOTHYROXINE SODIUM [Concomitant]
     Active Substance: LEVOTHYROXINE SODIUM
  20. SODIUM BICARBONATE [Concomitant]
     Active Substance: SODIUM BICARBONATE
  21. RESONIUM [Concomitant]
     Active Substance: SODIUM POLYSTYRENE SULFONATE
  22. TRAZODONE HYDROCHLORIDE [Concomitant]
     Active Substance: TRAZODONE HYDROCHLORIDE
  23. LOPERAMIDE [Concomitant]
     Active Substance: LOPERAMIDE
  24. ACETAMINOPHEN [Concomitant]
     Active Substance: ACETAMINOPHEN

REACTIONS (14)
  - Device related sepsis [Unknown]
  - Haemoglobin decreased [Unknown]
  - Device related infection [Unknown]
  - Influenza [Unknown]
  - C-reactive protein increased [Unknown]
  - Folate deficiency [Unknown]
  - Blood glucose increased [Unknown]
  - Blood alkaline phosphatase decreased [Unknown]
  - Gamma-glutamyltransferase increased [Unknown]
  - Blood triglycerides increased [Unknown]
  - Blood creatinine increased [Unknown]
  - Blood urea increased [Unknown]
  - Blood uric acid increased [Unknown]
  - Mean cell volume increased [Unknown]

NARRATIVE: CASE EVENT DATE: 20220101
